FAERS Safety Report 17228600 (Version 2)
Quarter: 2020Q1

REPORT INFORMATION
  Report Type: Report from Study
  Country: AU (occurrence: AU)
  Receive Date: 20200103
  Receipt Date: 20200116
  Transmission Date: 20200409
  Serious: Yes (Hospitalization)
  Sender: FDA-Public Use
  Company Number: AU-MYLANLABS-2019M1129131

PATIENT
  Age: 68 Year
  Sex: Male
  Weight: 92 kg

DRUGS (8)
  1. KEYTRUDA [Suspect]
     Active Substance: PEMBROLIZUMAB
     Dosage: 2 MG/KG, IV
     Route: 042
  2. BISOPROLOL [Suspect]
     Active Substance: BISOPROLOL
     Indication: ATRIAL FIBRILLATION
     Dosage: 2.5 MILLIGRAM
     Route: 048
     Dates: start: 20191030
  3. BISOPROLOL [Suspect]
     Active Substance: BISOPROLOL
     Dosage: 1.25 MILLIGRAM, QD
     Route: 048
     Dates: start: 20191030
  4. MGA 271 [Suspect]
     Active Substance: ENOBLITUZUMAB
     Dosage: 15 MG/KG, IV
     Route: 042
  5. MGA 271 [Suspect]
     Active Substance: ENOBLITUZUMAB
     Indication: TONGUE CANCER METASTATIC
     Dosage: 15 MG/KG, INTRAVENOUSLY (IV)
     Route: 042
     Dates: start: 20190702
  6. KEYTRUDA [Suspect]
     Active Substance: PEMBROLIZUMAB
     Indication: TONGUE CANCER METASTATIC
     Dosage: UNK UNK, Q3W
     Route: 042
     Dates: start: 20190702
  7. THYROXINE [Concomitant]
     Active Substance: LEVOTHYROXINE
     Dosage: UNK
     Route: 065
     Dates: start: 20181122
  8. APIXABAN [Concomitant]
     Active Substance: APIXABAN
     Dosage: 5 MILLIGRAM, BID
     Route: 065
     Dates: start: 20190703

REACTIONS (1)
  - Atrioventricular block [Recovered/Resolved]

NARRATIVE: CASE EVENT DATE: 20191119
